FAERS Safety Report 4298444-4 (Version None)
Quarter: 2004Q1

REPORT INFORMATION
  Report Type: 
  Country: None (occurrence: None)
  Receive Date: 20040218
  Receipt Date: 20030730
  Transmission Date: 20041129
  Serious: Yes (Other)
  Sender: FDA-Public Use
  Company Number: US-BRISTOL-MYERS SQUIBB COMPANY-12342739

PATIENT
  Sex: Male

DRUGS (6)
  1. STADOL [Suspect]
  2. TALWIN [Concomitant]
  3. LORCET-HD [Concomitant]
  4. PROZAC [Concomitant]
  5. BUSPAR [Concomitant]
  6. MECLIZINE [Concomitant]

REACTIONS (1)
  - DEPENDENCE [None]
